FAERS Safety Report 4429308-0 (Version None)
Quarter: 2004Q3

REPORT INFORMATION
  Report Type: 
  Country: None (occurrence: None)
  Receive Date: 20040816
  Receipt Date: 20040729
  Transmission Date: 20050211
  Serious: Yes (Hospitalization)
  Sender: FDA-Public Use
  Company Number: F01200402284

PATIENT
  Age: 59 Year
  Sex: Female

DRUGS (4)
  1. (OXALIPLATIN)-SOLUTION- 85MG/M2 [Suspect]
     Indication: COLORECTAL CANCER
     Dosage: 85 MG/M2 Q2W, 2 HOURS, INTRAVENOUS NOS
     Route: 042
     Dates: start: 20040525, end: 20040525
  2. FLUOROURACIL [Suspect]
     Dosage: 400 MG/M2 BOLUS THEN 2400 MG/M2 AS 46 HOURS INFUSION Q2W, 3 DAYS, INTRAVENOUS NOS
     Route: 042
     Dates: start: 20040525, end: 20040527
  3. (LEUCOVORIN) - SOLUTION - 350 MG [Suspect]
     Dosage: 350 MG Q2W, INTRAVENOUS NOS; 2 HOURS
     Route: 042
     Dates: start: 20040525, end: 20040525
  4. AVASTIN [Suspect]
     Dosage: INTRAVENOUS NOS; 1 HOUR 30 MINS
     Route: 042
     Dates: start: 20040525, end: 20040525

REACTIONS (1)
  - INTESTINAL PERFORATION [None]
